FAERS Safety Report 4791304-1 (Version None)
Quarter: 2005Q4

REPORT INFORMATION
  Report Type: 
  Country: None (occurrence: None)
  Receive Date: 20051007
  Receipt Date: 20050922
  Transmission Date: 20060501
  Serious: Yes (Other)
  Sender: FDA-Public Use
  Company Number: BE-GILEAD-2005-0008737

PATIENT
  Age: 54 Year
  Sex: Male

DRUGS (4)
  1. HEPSERA [Suspect]
     Route: 048
     Dates: start: 20030301, end: 20050103
  2. HEPSERA [Suspect]
     Route: 048
     Dates: start: 20050103, end: 20050519
  3. EPIVIR [Concomitant]
     Dates: start: 19980201
  4. CYCLOSPORINE [Concomitant]

REACTIONS (4)
  - CREATININE RENAL CLEARANCE DECREASED [None]
  - KIDNEY TRANSPLANT REJECTION [None]
  - MYOCARDIAL INFARCTION [None]
  - NEPHRITIS INTERSTITIAL [None]
